FAERS Safety Report 7362529-6 (Version None)
Quarter: 2011Q1

REPORT INFORMATION
  Report Type: 
  Country: None (occurrence: None)
  Receive Date: 20110318
  Receipt Date: 20110119
  Transmission Date: 20110831
  Serious: Yes (Other)
  Sender: FDA-Public Use
  Company Number: JP-ASTRAZENECA-2011SE14848

PATIENT
  Age: 30991 Day
  Sex: Male

DRUGS (11)
  1. MEROPENEM [Suspect]
     Indication: PNEUMONIA
     Route: 042
     Dates: start: 20101203, end: 20101208
  2. ZANTAC [Concomitant]
  3. CEREB SYRUP [Concomitant]
  4. PHENOBAL [Concomitant]
  5. DIGOSIN [Concomitant]
  6. VENOGLOBULIN [Concomitant]
  7. PLETAL [Concomitant]
  8. MEROPENEM [Suspect]
     Route: 042
     Dates: start: 20101222
  9. LASIX [Concomitant]
  10. VERAPAMIL HCL [Concomitant]
  11. TAKEPRON [Concomitant]

REACTIONS (1)
  - ACUTE GENERALISED EXANTHEMATOUS PUSTULOSIS [None]
